FAERS Safety Report 4791134-0 (Version None)
Quarter: 2005Q4

REPORT INFORMATION
  Report Type: 
  Country: None (occurrence: None)
  Receive Date: 20051007
  Receipt Date: 20050927
  Transmission Date: 20060501
  Serious: Yes (Other)
  Sender: FDA-Public Use
  Company Number: PHEH2005US10775

PATIENT
  Age: 59 Year
  Sex: Male

DRUGS (1)
  1. ZOMETA [Suspect]
     Indication: LUNG CANCER METASTATIC
     Dosage: 4 MG, MONTHLY
     Dates: start: 20030101, end: 20040601

REACTIONS (16)
  - ACTINOMYCOSIS [None]
  - BONE DISORDER [None]
  - BONE LESION [None]
  - ERYTHEMA [None]
  - GINGIVAL INFECTION [None]
  - IMPAIRED HEALING [None]
  - INCISIONAL DRAINAGE [None]
  - LYMPH NODE PAIN [None]
  - LYMPHADENOPATHY [None]
  - OEDEMA MOUTH [None]
  - OSTEOLYSIS [None]
  - OSTEOMYELITIS [None]
  - OSTEONECROSIS [None]
  - PAIN IN JAW [None]
  - SOFT TISSUE INFECTION [None]
  - TOOTH EXTRACTION [None]
